FAERS Safety Report 9307993 (Version 1)
Quarter: 2013Q2

REPORT INFORMATION
  Report Type: Spontaneous
  Country: US (occurrence: US)
  Receive Date: 20130524
  Receipt Date: 20130524
  Transmission Date: 20140414
  Serious: Yes (Other)
  Sender: FDA-Public Use
  Company Number: US-PFIZER INC-2013158672

PATIENT
  Age: 67 Year
  Sex: Female
  Weight: 113.4 kg

DRUGS (2)
  1. TIKOSYN [Suspect]
     Indication: ATRIAL FIBRILLATION
     Dosage: 250 UG, 2X/DAY
     Route: 048
     Dates: start: 2010
  2. TIKOSYN [Suspect]
     Dosage: 125 UG, 2X/DAY
     Route: 048

REACTIONS (3)
  - Urinary tract infection [Unknown]
  - Arrhythmia [Unknown]
  - Fungal infection [Unknown]
